FAERS Safety Report 14333904 (Version 1)
Quarter: 2017Q4

REPORT INFORMATION
  Report Type: Spontaneous
  Country: US (occurrence: US)
  Receive Date: 20171227
  Receipt Date: 20171227
  Transmission Date: 20180321
  Serious: No
  Sender: FDA-Public Use
  Company Number: None

PATIENT
  Sex: Female

DRUGS (1)
  1. STELARA [Suspect]
     Active Substance: USTEKINUMAB
     Indication: RASH PAPULOSQUAMOUS
     Dosage: 45MG EVERY 12 WEEKS SQ
     Route: 058
     Dates: start: 20170803

REACTIONS (4)
  - Suicidal ideation [None]
  - Oedema [None]
  - Weight increased [None]
  - Depression [None]
